FAERS Safety Report 7944504-3 (Version None)
Quarter: 2011Q4

REPORT INFORMATION
  Report Type: 
  Country: None (occurrence: None)
  Receive Date: 20111122
  Receipt Date: 20110727
  Transmission Date: 20120403
  Serious: Yes (Other)
  Sender: FDA-Public Use
  Company Number: PHYY2011US68671

PATIENT
  Age: 39 Year

DRUGS (1)
  1. GILENYA [Suspect]
     Indication: MULTIPLE SCLEROSIS RELAPSE
     Dosage: 0.5 MG, QD, ORAL
     Route: 048
     Dates: start: 20110505, end: 20110526

REACTIONS (4)
  - MULTIPLE SCLEROSIS [None]
  - VISUAL ACUITY REDUCED [None]
  - MACULAR OEDEMA [None]
  - VISUAL IMPAIRMENT [None]
